FAERS Safety Report 11912134 (Version 1)
Quarter: 2016Q1

REPORT INFORMATION
  Report Type: Spontaneous
  Country: US (occurrence: US)
  Receive Date: 20160112
  Receipt Date: 20160112
  Transmission Date: 20160526
  Serious: No
  Sender: FDA-Public Use
  Company Number: US-TEVA-624308ACC

PATIENT
  Age: 29 Year
  Sex: Female
  Weight: 90.8 kg

DRUGS (4)
  1. HYDROCHLORO [Concomitant]
     Indication: FLUID RETENTION
  2. PHENTERMINE. [Concomitant]
     Active Substance: PHENTERMINE
     Indication: WEIGHT DECREASED
  3. B12 SHOT WEEKLY [Concomitant]
  4. TAKE ACTION [Suspect]
     Active Substance: LEVONORGESTREL
     Indication: POST COITAL CONTRACEPTION
     Dates: start: 20151201, end: 20151201

REACTIONS (2)
  - Vaginal haemorrhage [Recovered/Resolved]
  - Breast tenderness [Recovered/Resolved]

NARRATIVE: CASE EVENT DATE: 20151220
